FAERS Safety Report 7805608-9 (Version None)
Quarter: 2011Q4

REPORT INFORMATION
  Report Type: 
  Country: None (occurrence: None)
  Receive Date: 20111010
  Receipt Date: 20110929
  Transmission Date: 20120403
  Serious: Yes (Hospitalization)
  Sender: FDA-Public Use
  Company Number: SE-ASTRAZENECA-2011SE58496

PATIENT
  Age: 80 Year
  Sex: Female

DRUGS (5)
  1. VAGIFEM [Concomitant]
  2. METOPROLOL TARTRATE [Concomitant]
  3. ASPIRIN [Concomitant]
  4. ATACAND [Suspect]
     Indication: ESSENTIAL HYPERTENSION
     Route: 048
     Dates: start: 20110601, end: 20110721
  5. TOVIAZ [Concomitant]

REACTIONS (1)
  - HYPONATRAEMIA [None]
